FAERS Safety Report 4994674-4 (Version None)
Quarter: 2006Q2

REPORT INFORMATION
  Report Type: 
  Country: None (occurrence: None)
  Receive Date: 20060505
  Receipt Date: 20051013
  Transmission Date: 20061013
  Serious: Yes (Other)
  Sender: FDA-Public Use
  Company Number: PR-MERCK-0510USA07186

PATIENT
  Age: 60 Year
  Sex: Female
  Weight: 89 kg

DRUGS (19)
  1. VIOXX [Suspect]
     Indication: OSTEOARTHRITIS
     Route: 048
     Dates: start: 20000317, end: 20000901
  2. VIOXX [Suspect]
     Indication: BACK PAIN
     Route: 048
     Dates: start: 20000317, end: 20000901
  3. CELEBREX [Concomitant]
     Route: 065
  4. ATENOLOL [Concomitant]
     Indication: HYPERTENSION
     Route: 065
     Dates: start: 19980716
  5. CARDURA [Concomitant]
     Indication: HYPERTENSION
     Route: 065
     Dates: start: 19991019, end: 20000826
  6. SKELAXIN [Concomitant]
     Indication: ANALGESIC EFFECT
     Route: 065
     Dates: start: 19990116, end: 20001216
  7. PREMARIN [Concomitant]
     Indication: MENOPAUSE
     Route: 065
     Dates: start: 19990116, end: 20000726
  8. CLARITIN [Concomitant]
     Indication: HYPERSENSITIVITY
     Route: 065
     Dates: start: 19990320
  9. LEVSINEX TIMECAPS [Concomitant]
     Indication: STOMACH DISCOMFORT
     Route: 065
     Dates: start: 19990514, end: 20000115
  10. PREVENTIUM [Concomitant]
     Indication: BLOOD CHOLESTEROL
     Route: 065
     Dates: start: 19990514
  11. PREVACID [Concomitant]
     Indication: GASTROOESOPHAGEAL REFLUX DISEASE
     Route: 065
     Dates: start: 19991203, end: 20000130
  12. CELEBREX [Concomitant]
     Indication: PAIN
     Route: 065
     Dates: start: 19991203, end: 20030225
  13. MECLIZINE [Concomitant]
     Indication: MOTION SICKNESS
     Route: 065
     Dates: start: 19991221, end: 20000121
  14. CEDAX [Concomitant]
     Route: 065
     Dates: start: 20000122, end: 20000302
  15. DYPHYLLINE [Concomitant]
     Indication: ASTHMA
     Route: 065
     Dates: start: 20000122, end: 20000326
  16. [THERAPY UNSPECIFIED] [Concomitant]
     Route: 065
     Dates: start: 20000122, end: 20040805
  17. [THERAPY UNSPECIFIED] [Concomitant]
     Indication: COUGH
     Route: 065
     Dates: start: 20000122, end: 20000126
  18. [THERAPY UNSPECIFIED] [Concomitant]
     Indication: NASAL DECONGESTION THERAPY
     Route: 065
     Dates: start: 20000124, end: 20000209
  19. [THERAPY UNSPECIFIED] [Concomitant]
     Route: 065
     Dates: start: 20000127, end: 20000210

REACTIONS (13)
  - ANGINA PECTORIS [None]
  - CEREBROVASCULAR ACCIDENT [None]
  - CHEST PAIN [None]
  - DIABETES MELLITUS [None]
  - DYSPEPSIA [None]
  - EMOTIONAL DISTRESS [None]
  - GASTRITIS [None]
  - HEART RATE IRREGULAR [None]
  - LACUNAR INFARCTION [None]
  - NAUSEA [None]
  - NEUROPATHY [None]
  - OEDEMA [None]
  - STOMACH DISCOMFORT [None]
